FAERS Safety Report 7394902-4 (Version None)
Quarter: 2011Q2

REPORT INFORMATION
  Report Type: 
  Country: None (occurrence: None)
  Receive Date: 20110405
  Receipt Date: 20110325
  Transmission Date: 20111010
  Serious: Yes (Hospitalization)
  Sender: FDA-Public Use
  Company Number: B0708374A

PATIENT
  Sex: Male

DRUGS (33)
  1. AMBISOME [Suspect]
     Dosage: 3MGK PER DAY
     Route: 042
     Dates: start: 20101109, end: 20101113
  2. ZELITREX [Concomitant]
     Indication: INFECTION PROPHYLAXIS
     Dosage: 500MG TWICE PER DAY
     Route: 048
     Dates: start: 20100907, end: 20100911
  3. TRIFLUCAN [Suspect]
     Indication: INFECTION PROPHYLAXIS
     Dosage: 200MG PER DAY
     Route: 048
     Dates: start: 20101008, end: 20101108
  4. HEPARIN SODIUM [Concomitant]
     Dosage: 80MG PER DAY
     Dates: start: 20100921, end: 20101119
  5. METHOTREXATE [Concomitant]
     Dosage: 6000MG PER DAY
     Route: 065
     Dates: start: 20101008, end: 20101008
  6. ACUPAN [Concomitant]
  7. POLARAMINE [Concomitant]
     Dosage: 1AMP PER DAY
     Dates: start: 20101024, end: 20101029
  8. BICNU [Concomitant]
     Dosage: 300MGM2 SINGLE DOSE
     Dates: start: 20101021, end: 20101021
  9. ZOPHREN [Suspect]
     Indication: PREMEDICATION
     Route: 042
     Dates: start: 20101008, end: 20101101
  10. VANCOMYCINE [Concomitant]
     Dates: start: 20101026, end: 20101027
  11. EMEND [Concomitant]
     Dates: start: 20101026, end: 20101030
  12. ETOPOPHOS PRESERVATIVE FREE [Concomitant]
     Dates: start: 20101022, end: 20101025
  13. ZOVIRAX [Suspect]
     Indication: INFECTION PROPHYLAXIS
     Dosage: 250MG THREE TIMES PER DAY
     Route: 042
     Dates: start: 20101021, end: 20101112
  14. TARGOCID [Suspect]
     Dosage: 400MG SEE DOSAGE TEXT
     Route: 042
     Dates: start: 20101029, end: 20101113
  15. TIENAM [Suspect]
     Dosage: 1G THREE TIMES PER DAY
     Route: 042
     Dates: start: 20101105, end: 20101110
  16. GENTAMICIN [Concomitant]
     Dosage: 2CAP THREE TIMES PER DAY
     Route: 048
     Dates: start: 20101025, end: 20101119
  17. TAZOCILLINE [Suspect]
     Dosage: 4G THREE TIMES PER DAY
     Route: 042
     Dates: start: 20101029, end: 20101105
  18. CIFLOX [Suspect]
     Dosage: 400MG TWICE PER DAY
     Route: 042
     Dates: start: 20101029, end: 20101110
  19. NEORECORMON [Concomitant]
     Dosage: 30000IU PER DAY
     Route: 065
     Dates: start: 20101011, end: 20101011
  20. SPASFON [Concomitant]
     Dates: start: 20101105, end: 20101112
  21. MOPRAL [Suspect]
     Route: 048
     Dates: end: 20101115
  22. FOLINORAL [Concomitant]
     Dosage: 50MG FOUR TIMES PER DAY
     Dates: start: 20101009, end: 20101011
  23. GELOX [Concomitant]
     Dosage: 1SAC THREE TIMES PER DAY
     Route: 048
     Dates: start: 20101021, end: 20101114
  24. MYCOSTATIN [Concomitant]
     Dosage: 2CAP PER DAY
     Route: 048
     Dates: start: 20101021, end: 20101114
  25. CHIBROCADRON [Concomitant]
     Route: 047
     Dates: start: 20101012, end: 20101027
  26. PRIMPERAN TAB [Concomitant]
     Dosage: 1AMP THREE TIMES PER DAY
     Dates: start: 20101024, end: 20101118
  27. CYTARABINE [Concomitant]
     Dosage: 200MG TWICE PER DAY
     Dates: start: 20101022, end: 20101025
  28. AMIKLIN [Concomitant]
     Dosage: 1200MG PER DAY
     Dates: start: 20101105, end: 20101105
  29. COLIMYCINE [Concomitant]
     Dosage: 2000000IU TWICE PER DAY
     Route: 048
     Dates: start: 20101106, end: 20101115
  30. CONTRAMAL [Concomitant]
     Dosage: 1AMP PER DAY
     Dates: start: 20101105, end: 20101105
  31. SEROPRAM [Suspect]
     Dosage: 20MG PER DAY
     Route: 048
     Dates: end: 20101114
  32. OXYNORM [Concomitant]
     Dosage: 12MGH PER DAY
     Dates: start: 20101031, end: 20101114
  33. MELPHALAN [Concomitant]
     Dosage: 140MG PER DAY
     Dates: start: 20101026, end: 20101026

REACTIONS (3)
  - CYTOLYTIC HEPATITIS [None]
  - CONDITION AGGRAVATED [None]
  - CHOLESTASIS [None]
